FAERS Safety Report 8825933 (Version 1)
Quarter: 2012Q4

REPORT INFORMATION
  Report Type: 
  Country: US (occurrence: US)
  Receive Date: 20121005
  Receipt Date: 20121005
  Transmission Date: 20130627
  Serious: Yes (Hospitalization, Other)
  Sender: FDA-Public Use
  Company Number: US-ELI_LILLY_AND_COMPANY-US201209006923

PATIENT
  Age: 37 Year
  Sex: Male

DRUGS (5)
  1. CYMBALTA [Suspect]
     Indication: BIPOLAR DISORDER
     Dosage: UNK, unknown
  2. DEPAKOTE ER [Concomitant]
     Dosage: 500 mg, bid
  3. KEPPRA [Concomitant]
     Dosage: UNK, unknown
  4. KLONOPIN [Concomitant]
     Dosage: UNK, unknown
  5. POTASSIUM [Concomitant]
     Dosage: UNK, unknown

REACTIONS (7)
  - Leukocytosis [Unknown]
  - Hypokalaemia [Recovered/Resolved]
  - Convulsion [Unknown]
  - Pain [Unknown]
  - White blood cell count [Unknown]
  - Off label use [Unknown]
  - Drug withdrawal syndrome [Unknown]
